FAERS Safety Report 9581434 (Version 1)
Quarter: 2013Q4

REPORT INFORMATION
  Report Type: Spontaneous
  Country: FR (occurrence: FR)
  Receive Date: 20131002
  Receipt Date: 20131002
  Transmission Date: 20140711
  Serious: Yes (Hospitalization)
  Sender: FDA-Public Use
  Company Number: FR-B.I. PHARMACEUTICALS,INC./RIDGEFIELD-2013-FF-02385FF

PATIENT
  Age: 80 Year
  Sex: Male

DRUGS (5)
  1. PRADAXA [Suspect]
     Indication: ATRIAL FIBRILLATION
     Dosage: 220 MG
     Route: 048
     Dates: start: 20130112
  2. FLECAINE [Concomitant]
  3. CRESTOR [Concomitant]
  4. MOPRAL [Concomitant]
  5. GALVUS [Concomitant]

REACTIONS (1)
  - Ischaemic stroke [Recovered/Resolved]
